FAERS Safety Report 5968007-0 (Version None)
Quarter: 2008Q4

REPORT INFORMATION
  Report Type: 
  Country: None (occurrence: None)
  Receive Date: 20081121
  Receipt Date: 20081121
  Transmission Date: 20090506
  Serious: Yes (Other)
  Sender: FDA-Public Use
  Company Number: None

PATIENT
  Age: 59 Year
  Sex: Female
  Weight: 72.1219 kg

DRUGS (1)
  1. ACTONEL [Suspect]
     Indication: OSTEOPOROSIS
     Dosage: 1 TABLET ONCE EACH MONTH PO (DURATION: TWICE)
     Route: 048
     Dates: start: 20080915, end: 20081015

REACTIONS (1)
  - DRUG HYPERSENSITIVITY [None]
